FAERS Safety Report 22192750 (Version 1)
Quarter: 2023Q2

REPORT INFORMATION
  Report Type: Spontaneous
  Country: US (occurrence: None)
  Receive Date: 20230410
  Receipt Date: 20230410
  Transmission Date: 20230721
  Serious: Yes (Other)
  Sender: FDA-Public Use
  Company Number: None

PATIENT
  Age: 10 Day
  Sex: Female

DRUGS (3)
  1. IMITREX [Suspect]
     Active Substance: SUMATRIPTAN SUCCINATE
     Indication: Migraine
     Dosage: FREQUENCY : AS NEEDED;?
     Route: 048
     Dates: start: 2021
  2. OXYCODONE [Suspect]
     Active Substance: OXYCODONE
     Indication: Migraine
     Dosage: FREQUENCY : AS NEEDED;?
     Route: 048
  3. Prenatal vitamins [Concomitant]

REACTIONS (3)
  - Developmental hip dysplasia [None]
  - Maternal drugs affecting foetus [None]
  - Joint dislocation [None]

NARRATIVE: CASE EVENT DATE: 20221216
